FAERS Safety Report 8608243 (Version 4)
Quarter: 2014Q1

REPORT INFORMATION
  Report Type: Spontaneous
  Country: US (occurrence: US)
  Receive Date: 20120611
  Receipt Date: 20140218
  Transmission Date: 20141002
  Serious: Yes (Disabling, Other)
  Sender: FDA-Public Use
  Company Number: US-ASTRAZENECA-2012SE35439

PATIENT
  Age: 684 Month
  Sex: Male
  Weight: 88.5 kg

DRUGS (7)
  1. NEXIUM [Suspect]
     Route: 048
     Dates: start: 200309
  2. NEXIUM [Suspect]
     Route: 048
     Dates: start: 20080804
  3. NEXIUM [Suspect]
     Route: 048
     Dates: start: 201001
  4. AMLODIPINE [Concomitant]
     Dates: start: 20080804
  5. ATENOLOL [Concomitant]
     Dates: start: 20090206
  6. OMEPRAZOLE [Concomitant]
     Dates: start: 20111114
  7. SYMBICORT [Concomitant]
     Dates: start: 20110907

REACTIONS (9)
  - Femur fracture [Unknown]
  - Osteoporosis [Unknown]
  - Chronic obstructive pulmonary disease [Unknown]
  - Rib fracture [Unknown]
  - Humerus fracture [Unknown]
  - Musculoskeletal disorder [Unknown]
  - Depression [Unknown]
  - Hip fracture [Unknown]
  - Head injury [Unknown]
